FAERS Safety Report 5016939-2 (Version None)
Quarter: 2006Q2

REPORT INFORMATION
  Report Type: 
  Country: None (occurrence: None)
  Receive Date: 20060526
  Receipt Date: 20060511
  Transmission Date: 20061013
  Serious: Yes (Death, Other)
  Sender: FDA-Public Use
  Company Number: PHO-2006-014-F-UP 1

PATIENT
  Age: 58 Year
  Sex: Female

DRUGS (35)
  1. PHOTOFRIN [Suspect]
     Indication: MALIGNANT PERITONEAL NEOPLASM
     Dosage: 2.5 MG/KG IV
     Route: 042
     Dates: start: 20010930
  2. ATIVAN [Concomitant]
  3. CALCIUM GLUCONATE [Concomitant]
  4. CARAFATE [Concomitant]
  5. CEFAZOLIN [Concomitant]
  6. FENTANYL [Concomitant]
  7. FLAGYL [Concomitant]
  8. FLEETS ENEMA [Concomitant]
  9. LASIX [Concomitant]
  10. MAGNESIUM CITRATE [Concomitant]
  11. MULTIVITAMIN [Concomitant]
  12. PANCURONIUM 100 [Concomitant]
  13. POTASSIUM CHLORIDE [Concomitant]
  14. TEMAZEPAM (RESTORIL) [Concomitant]
  15. INSULIN [Concomitant]
  16. RANTIDINE (ZANTAC) [Concomitant]
  17. ALBUMIN [Concomitant]
  18. AMPICILLIN SODIUM [Concomitant]
  19. CEFEPIM [Concomitant]
  20. CHLORAMPHENICOL [Concomitant]
  21. DEXTROSE 50% [Concomitant]
  22. FLUCONAZOLE [Concomitant]
  23. LACRI-LUBE OCULAR [Concomitant]
  24. MAGNESIUM SULFATE [Concomitant]
  25. PHYTONADIONE [Concomitant]
  26. ACETAMINOPHEN (TYLENOL) [Concomitant]
  27. VANCOMYCIN [Concomitant]
  28. ALBUTEROL [Concomitant]
  29. IPATROPIUM BROMIDE (ATROVENT) [Concomitant]
  30. IMIPENEM [Concomitant]
  31. NYSTATIN TOPICAL POWDER [Concomitant]
  32. CALCIUM CHLORIDE [Concomitant]
  33. NEOSTIGMINE [Concomitant]
  34. CALCIUM ACETATE [Concomitant]
  35. SODIUM BICARBONATE [Concomitant]

REACTIONS (23)
  - ANAEMIA [None]
  - BLOOD BILIRUBIN INCREASED [None]
  - BLOOD CREATININE INCREASED [None]
  - BONE MARROW DISORDER [None]
  - COAGULOPATHY [None]
  - FLUID OVERLOAD [None]
  - GASTROINTESTINAL DISORDER [None]
  - GASTROINTESTINAL OEDEMA [None]
  - GENERAL PHYSICAL HEALTH DETERIORATION [None]
  - HYPERBILIRUBINAEMIA [None]
  - HYPOTENSION [None]
  - INCISION SITE COMPLICATION [None]
  - INTESTINAL HAEMORRHAGE [None]
  - INTRA-ABDOMINAL HAEMORRHAGE [None]
  - PLEURAL EFFUSION [None]
  - POST PROCEDURAL COMPLICATION [None]
  - POSTOPERATIVE WOUND COMPLICATION [None]
  - PROCEDURAL COMPLICATION [None]
  - REFUSAL OF TREATMENT BY RELATIVE [None]
  - RENAL FAILURE [None]
  - SEPSIS [None]
  - THROMBOCYTOPENIA [None]
  - URINE OUTPUT DECREASED [None]
